FAERS Safety Report 14103733 (Version 1)
Quarter: 2017Q4

REPORT INFORMATION
  Report Type: Not Available
  Country: IT (occurrence: IT)
  Receive Date: 20171018
  Receipt Date: 20171018
  Transmission Date: 20180321
  Serious: No
  Sender: FDA-Public Use
  Company Number: IT-BIOGEN-2017BV000364

PATIENT
  Age: 9 Year
  Sex: Male

DRUGS (1)
  1. ELOCTA [Suspect]
     Active Substance: EFMOROCTOCOG ALFA
     Indication: FACTOR VIII DEFICIENCY
     Dosage: 1500 (UNKNOWN UNIT) EACH DAY FOR 3 CONSECUTIVE DAYS
     Route: 042
     Dates: start: 20171007

REACTIONS (1)
  - Incorrect drug administration duration [Unknown]

NARRATIVE: CASE EVENT DATE: 20171008
